FAERS Safety Report 12214550 (Version 3)
Quarter: 2016Q2

REPORT INFORMATION
  Report Type: Spontaneous
  Country: US (occurrence: US)
  Receive Date: 20160328
  Receipt Date: 20160412
  Transmission Date: 20160815
  Serious: Yes (Life-Threatening, Other)
  Sender: FDA-Public Use
  Company Number: US-MDT-ADR-2016-00502

PATIENT
  Age: 65 Year
  Sex: Female

DRUGS (24)
  1. BACLOFEN. [Suspect]
     Active Substance: BACLOFEN
     Route: 037
     Dates: start: 20160120
  2. SPIRONOLACTONE HCTZ [Suspect]
     Active Substance: HYDROCHLOROTHIAZIDE\SPIRONOLACTONE
     Dosage: 25-25 MG TABS
     Route: 048
     Dates: start: 20131029
  3. LIORESAL [Suspect]
     Active Substance: BACLOFEN
     Dosage: 50 MCG/DAY
     Route: 037
     Dates: start: 20141106
  4. COMPOUNDED SUFENTANIL [Suspect]
     Active Substance: SUFENTANIL
     Dosage: 6 MCG/DAY
     Route: 037
  5. MAGNESIUM OXIDE. [Suspect]
     Active Substance: MAGNESIUM OXIDE
     Dosage: 400 MG CAPS
     Route: 048
     Dates: start: 20131029
  6. SUFENTANIL [Suspect]
     Active Substance: SUFENTANIL
     Dosage: 9.985 MCG/DAY
     Route: 037
  7. ASPIRIN. [Suspect]
     Active Substance: ASPIRIN
     Dosage: 81 MG TAB
     Route: 048
     Dates: start: 20131029
  8. DILAUDID [Suspect]
     Active Substance: HYDROMORPHONE HYDROCHLORIDE
     Dosage: 2 MG
     Route: 048
     Dates: start: 20151207
  9. VYTORIN [Suspect]
     Active Substance: EZETIMIBE\SIMVASTATIN
     Dosage: 10-20 MG TABS
     Route: 048
     Dates: start: 20131029
  10. AMBIEN [Suspect]
     Active Substance: ZOLPIDEM TARTRATE
     Dosage: 12.5 MG ONE AT BEDTIME AS NEEDED
     Route: 048
     Dates: start: 20150908
  11. SUFENTANIL [Suspect]
     Active Substance: SUFENTANIL
     Route: 037
     Dates: start: 20160120
  12. ZOLPIDEM TARTRATE. [Suspect]
     Active Substance: ZOLPIDEM TARTRATE
     Dosage: 10 MG TABS
     Route: 048
     Dates: start: 20131029
  13. POTASSIUM CHLORIDE ER [Suspect]
     Active Substance: POTASSIUM CHLORIDE
     Route: 048
     Dates: start: 20131029
  14. LORAZEPAM. [Suspect]
     Active Substance: LORAZEPAM
     Dosage: 0.5 MG TABS
     Route: 048
     Dates: start: 20131029
  15. DILAUDID [Suspect]
     Active Substance: HYDROMORPHONE HYDROCHLORIDE
     Dosage: 0.3 MG/DAY
     Route: 037
     Dates: start: 20160210, end: 20160215
  16. NITRO-DUR [Suspect]
     Active Substance: NITROGLYCERIN
     Dosage: 0.1 MG/HR PT 24/DAY
     Route: 061
     Dates: start: 20130913
  17. HYDROXYZINE HCL [Suspect]
     Active Substance: HYDROXYZINE HYDROCHLORIDE
     Dosage: 25 MG TAB
     Route: 048
     Dates: start: 20131029
  18. DICYCLOMINE HCL [Suspect]
     Active Substance: DICYCLOMINE HYDROCHLORIDE
     Dosage: 10 MG TABS
     Route: 048
     Dates: start: 20131029
  19. COMPOUNDED BACLOFEN [Suspect]
     Active Substance: BACLOFEN
     Dosage: 49.92 MCG/DAY
     Route: 037
  20. CYCLOBENZAPRINE [Suspect]
     Active Substance: CYCLOBENZAPRINE
     Dosage: 10 MG TABS
     Route: 048
     Dates: start: 20131029
  21. LASIX [Suspect]
     Active Substance: FUROSEMIDE
     Dosage: 20 MG TABS
     Route: 048
     Dates: start: 20131029
  22. ZOFRAN [Suspect]
     Active Substance: ONDANSETRON HYDROCHLORIDE
     Dosage: 8 MG 1 EVERY SIX HOURS AS NEEDED
     Route: 048
     Dates: start: 20150316
  23. HYDROMORPHONE [Suspect]
     Active Substance: HYDROMORPHONE
     Route: 037
     Dates: start: 20160127
  24. SUFENTA [Suspect]
     Active Substance: SUFENTANIL CITRATE
     Dosage: 10 MCG/DAY
     Route: 037
     Dates: start: 20150909

REACTIONS (12)
  - Vomiting [Recovering/Resolving]
  - Hyperhidrosis [Unknown]
  - Blood potassium decreased [Recovering/Resolving]
  - Back pain [Unknown]
  - Pain [Unknown]
  - Nerve compression [Unknown]
  - Radiculopathy [Unknown]
  - Urinary incontinence [Recovering/Resolving]
  - Nausea [Recovering/Resolving]
  - Drug intolerance [Recovering/Resolving]
  - Dehydration [Recovering/Resolving]
  - No therapeutic response [Unknown]

NARRATIVE: CASE EVENT DATE: 20160214
